FAERS Safety Report 8774182 (Version 2)
Quarter: 2013Q1

REPORT INFORMATION
  Report Type: Spontaneous
  Country: US (occurrence: US)
  Receive Date: 20120907
  Receipt Date: 20130313
  Transmission Date: 20140127
  Serious: Yes (Other)
  Sender: FDA-Public Use
  Company Number: US-JNJFOC-20120900657

PATIENT
  Age: 23 Year
  Sex: Female

DRUGS (7)
  1. LEVAQUIN [Suspect]
     Indication: INFECTION
     Route: 048
     Dates: start: 1996, end: 2007
  2. LEVAQUIN [Suspect]
     Indication: SINUS DISORDER
     Route: 048
     Dates: start: 1996, end: 2007
  3. LEVAQUIN [Suspect]
     Indication: ASTHMA
     Route: 048
     Dates: start: 1996, end: 2007
  4. NASACORT AQ [Suspect]
     Indication: BRONCHITIS
     Route: 065
  5. FLOVENT [Suspect]
     Indication: BRONCHITIS
     Route: 065
  6. MEDROL DOSE PACK [Suspect]
     Indication: PRODUCT USED FOR UNKNOWN INDICATION
     Route: 065
  7. PREDNISONE [Suspect]
     Indication: PRODUCT USED FOR UNKNOWN INDICATION
     Route: 065

REACTIONS (8)
  - Meniscus injury [Unknown]
  - Arthrofibrosis [Unknown]
  - Meniscus injury [Unknown]
  - Osteoarthritis [Unknown]
  - Foot fracture [Recovering/Resolving]
  - Rotator cuff syndrome [Unknown]
  - Rotator cuff syndrome [Unknown]
  - Plantar fasciitis [Unknown]
